FAERS Safety Report 16457573 (Version 1)
Quarter: 2019Q2

REPORT INFORMATION
  Report Type: Spontaneous
  Country: IT (occurrence: IT)
  Receive Date: 20190620
  Receipt Date: 20190620
  Transmission Date: 20190711
  Serious: Yes (Other)
  Sender: FDA-Public Use
  Company Number: IT-MYLANLABS-2019M1056641

PATIENT
  Age: 88 Year
  Sex: Male

DRUGS (2)
  1. FIDATO [Concomitant]
     Active Substance: CEFTRIAXONE SODIUM
     Indication: OEDEMATOUS PANCREATITIS
     Dosage: UNK
     Dates: start: 20180703, end: 20180716
  2. METRONIDAZOLE. [Suspect]
     Active Substance: METRONIDAZOLE
     Indication: OEDEMATOUS PANCREATITIS
     Dosage: UNK
     Dates: start: 20180712, end: 20180716

REACTIONS (2)
  - Erythema [Unknown]
  - Pruritus [Unknown]

NARRATIVE: CASE EVENT DATE: 20180716
